FAERS Safety Report 4540448-8 (Version None)
Quarter: 2004Q4

REPORT INFORMATION
  Report Type: 
  Country: None (occurrence: None)
  Receive Date: 20041229
  Receipt Date: 20041220
  Transmission Date: 20050328
  Serious: Yes (Other)
  Sender: FDA-Public Use
  Company Number: US-JNJFOC-20041205799

PATIENT
  Weight: 53.98 kg

DRUGS (10)
  1. REMICADE [Suspect]
     Route: 042
  2. REMICADE [Suspect]
     Indication: CROHN'S DISEASE
     Route: 042
  3. LOMOTIL [Concomitant]
  4. LOMOTIL [Concomitant]
  5. PRILOSEC [Concomitant]
  6. TPN [Concomitant]
  7. TPN [Concomitant]
  8. TPN [Concomitant]
  9. OXYCODONE HCL [Concomitant]
  10. COUMADIN [Concomitant]

REACTIONS (11)
  - ALANINE AMINOTRANSFERASE INCREASED [None]
  - ASPARTATE AMINOTRANSFERASE INCREASED [None]
  - BLOOD ALKALINE PHOSPHATASE INCREASED [None]
  - CENTRAL LINE INFECTION [None]
  - HYPOAESTHESIA [None]
  - JAUNDICE [None]
  - LIVER FUNCTION TEST ABNORMAL [None]
  - PARAESTHESIA [None]
  - PROTEUS INFECTION [None]
  - PYREXIA [None]
  - STAPHYLOCOCCAL INFECTION [None]
